FAERS Safety Report 4320647-0 (Version None)
Quarter: 2004Q1

REPORT INFORMATION
  Report Type: 
  Country: None (occurrence: None)
  Receive Date: 20040318
  Receipt Date: 20040301
  Transmission Date: 20041129
  Serious: Yes (Hospitalization)
  Sender: FDA-Public Use
  Company Number: 7590

PATIENT
  Age: 50 Year
  Sex: 0

DRUGS (1)
  1. METHOTREXATE [Suspect]
     Indication: MENINGITIS
     Dosage: 10 MG 2/WK IT
     Route: 038
     Dates: start: 20040127, end: 20040219

REACTIONS (9)
  - APHASIA [None]
  - APRAXIA [None]
  - CONFUSIONAL STATE [None]
  - DEPRESSED LEVEL OF CONSCIOUSNESS [None]
  - ENCEPHALOPATHY [None]
  - HEADACHE [None]
  - MOTOR DYSFUNCTION [None]
  - MYELOPATHY [None]
  - NECK PAIN [None]
